FAERS Safety Report 23804071 (Version 2)
Quarter: 2024Q2

REPORT INFORMATION
  Report Type: Spontaneous
  Country: US (occurrence: US)
  Receive Date: 20240501
  Receipt Date: 20240604
  Transmission Date: 20240716
  Serious: No
  Sender: FDA-Public Use
  Company Number: US-Calliditas-2024CAL00663

PATIENT
  Age: 62 Year
  Sex: Male

DRUGS (1)
  1. TARPEYO [Suspect]
     Active Substance: BUDESONIDE
     Indication: IgA nephropathy
     Route: 048
     Dates: start: 20231101, end: 20240429

REACTIONS (8)
  - Product dose omission issue [Unknown]
  - Blood pressure increased [Unknown]
  - COVID-19 [Unknown]
  - Malaise [Unknown]
  - Cough [Unknown]
  - Fatigue [Unknown]
  - Dyspnoea exertional [Unknown]
  - Back pain [Unknown]
